FAERS Safety Report 15779683 (Version 1)
Quarter: 2019Q1

REPORT INFORMATION
  Report Type: Spontaneous
  Country: CN (occurrence: CN)
  Receive Date: 20190101
  Receipt Date: 20190101
  Transmission Date: 20190417
  Serious: Yes (Other)
  Sender: FDA-Public Use
  Company Number: CN-ALKEM LABORATORIES LIMITED-CN-ALKEM-2018-04026

PATIENT
  Age: 19 Month
  Sex: Male

DRUGS (4)
  1. PREDNISONE. [Concomitant]
     Active Substance: PREDNISONE
     Indication: PRODUCT USED FOR UNKNOWN INDICATION
     Dosage: 2 MG/KG, QD
     Route: 065
  2. PREDNISONE. [Concomitant]
     Active Substance: PREDNISONE
     Dosage: 5 MG/KG, QD EVERY 4 WEEKS
     Route: 065
  3. PREDNISONE. [Concomitant]
     Active Substance: PREDNISONE
     Dosage: 1 MG/KG, QD CONTINUED FOR 8 WEEKS, FOLLOWED BY ALTERNATE DAYS FOR 4 WEEKS AND THEN TAPERED TO ZERO
     Route: 065
  4. MYCOPHENOLATE MOFETIL. [Suspect]
     Active Substance: MYCOPHENOLATE MOFETIL
     Indication: NEPHROTIC SYNDROME
     Dosage: 25-30 MG/KG PER DAY AND ADMINISTERED AS TWO DIVIDED DOSES FOR 6-12 MONTHS
     Route: 065

REACTIONS (1)
  - Drug ineffective [Unknown]
